FAERS Safety Report 8515540-3 (Version None)
Quarter: 2012Q3

REPORT INFORMATION
  Report Type: 
  Country: None (occurrence: None)
  Receive Date: 20120717
  Receipt Date: 20120705
  Transmission Date: 20120928
  Serious: Yes (Hospitalization, Other)
  Sender: FDA-Public Use
  Company Number: US-COVIDIEN/TYCO HEALTHCARE/MALLINCKRODT-T201202760

PATIENT
  Age: 54 Year
  Sex: Male

DRUGS (1)
  1. MORPHINE [Suspect]
     Dosage: UNK

REACTIONS (3)
  - LEUKOENCEPHALOPATHY [None]
  - CEREBRAL ISCHAEMIA [None]
  - ACCIDENTAL OVERDOSE [None]
